FAERS Safety Report 21568101 (Version 1)
Quarter: 2022Q4

REPORT INFORMATION
  Report Type: Spontaneous
  Country: US (occurrence: US)
  Receive Date: 20221108
  Receipt Date: 20221108
  Transmission Date: 20230112
  Serious: No
  Sender: FDA-Public Use
  Company Number: US-TEVA-2022-US-2820183

PATIENT
  Age: 77 Year
  Sex: Female
  Weight: 63.96 kg

DRUGS (4)
  1. CLONIDINE HYDROCHLORIDE [Suspect]
     Active Substance: CLONIDINE HYDROCHLORIDE
     Indication: Hypertension
     Dosage: 0.1 MG/24HR   ,0.1MG APPLY 1 PATCH ONCE A WEEK
     Route: 062
  2. ENALAPRIL [Concomitant]
     Active Substance: ENALAPRIL
     Indication: Product used for unknown indication
  3. CARVEDILOL [Concomitant]
     Active Substance: CARVEDILOL
     Indication: Product used for unknown indication
  4. METFORMIN [Concomitant]
     Active Substance: METFORMIN HYDROCHLORIDE
     Indication: Product used for unknown indication
     Dosage: 2000 MILLIGRAM DAILY;

REACTIONS (5)
  - Dermatitis contact [Unknown]
  - Erythema [Unknown]
  - Dermatitis contact [Unknown]
  - Application site scar [Unknown]
  - Application site burn [Unknown]
